FAERS Safety Report 7592429-8 (Version None)
Quarter: 2011Q3

REPORT INFORMATION
  Report Type: 
  Country: None (occurrence: None)
  Receive Date: 20110706
  Receipt Date: 20110624
  Transmission Date: 20111222
  Serious: Yes (Hospitalization)
  Sender: FDA-Public Use
  Company Number: JP-NOVOPROD-330894

PATIENT
  Age: 78 Year
  Sex: Female

DRUGS (3)
  1. HUMALOG [Concomitant]
     Dosage: UNK
     Route: 058
  2. INSULIN GLULISINE [Concomitant]
     Dosage: UNK
     Route: 058
  3. NOVOLIN R [Suspect]
     Indication: TYPE 1 DIABETES MELLITUS
     Dosage: UNK
     Route: 058

REACTIONS (2)
  - ANTI-INSULIN ANTIBODY POSITIVE [None]
  - HYPOGLYCAEMIA [None]
